FAERS Safety Report 4349032-2 (Version None)
Quarter: 2004Q2

REPORT INFORMATION
  Report Type: 
  Country: None (occurrence: None)
  Receive Date: 20040427
  Receipt Date: 20040427
  Transmission Date: 20050107
  Serious: No
  Sender: FDA-Public Use
  Company Number: None

PATIENT
  Age: 67 Year
  Sex: Female

DRUGS (2)
  1. FOSAMAX [Suspect]
     Dosage: 70 MG Q WK
  2. EC ASA 325 MG [Suspect]
     Dosage: 325 MG QD

REACTIONS (1)
  - GASTROINTESTINAL HAEMORRHAGE [None]
